FAERS Safety Report 20789499 (Version 1)
Quarter: 2022Q2

REPORT INFORMATION
  Report Type: Spontaneous
  Country: US (occurrence: US)
  Receive Date: 20220505
  Receipt Date: 20220505
  Transmission Date: 20220721
  Serious: No
  Sender: FDA-Public Use
  Company Number: US-NOVARTISTESTPH-NVSC2022US102917

PATIENT
  Sex: Female

DRUGS (2)
  1. LESCOL XL [Suspect]
     Active Substance: FLUVASTATIN SODIUM
     Indication: Product used for unknown indication
     Dosage: 80 MG, QOD
     Route: 065
  2. LESCOL [Concomitant]
     Active Substance: FLUVASTATIN SODIUM
     Indication: Product used for unknown indication
     Route: 065

REACTIONS (4)
  - Palpitations [Unknown]
  - Pain [Unknown]
  - Feeling abnormal [Unknown]
  - Memory impairment [Unknown]
